FAERS Safety Report 5923328-2 (Version None)
Quarter: 2008Q4

REPORT INFORMATION
  Report Type: 
  Country: None (occurrence: None)
  Receive Date: 20081015
  Receipt Date: 20081003
  Transmission Date: 20090506
  Serious: Yes (Hospitalization)
  Sender: FDA-Public Use
  Company Number: 232562K04USA

PATIENT
  Age: 42 Year
  Sex: Female
  Weight: 86 kg

DRUGS (14)
  1. REBIF [Suspect]
     Indication: MULTIPLE SCLEROSIS
     Dosage: 44 MCG, 3 IN 1 WEEKS, SUBCUTANEOUS
     Route: 058
     Dates: start: 20030621, end: 20080301
  2. SOLU-MEDROL [Suspect]
  3. PREDNISONE [Suspect]
     Dates: start: 20040101, end: 20040201
  4. LEVOTHYROXINE SODIUM [Concomitant]
  5. CALCIUM /00751501/ [Concomitant]
  6. MULTI-VITAMINS [Concomitant]
  7. BACLOFEN [Concomitant]
  8. AMANTADINE /00055901/ [Concomitant]
  9. MIRTAZAPINE [Concomitant]
  10. OESTRANORM [Concomitant]
  11. TRICOR [Concomitant]
  12. WELCHOL [Concomitant]
  13. BENICAR [Concomitant]
  14. NEXIUM [Concomitant]

REACTIONS (16)
  - ALOPECIA [None]
  - ASTHENIA [None]
  - BLOOD PRESSURE INCREASED [None]
  - BLOOD TRIGLYCERIDES INCREASED [None]
  - C-REACTIVE PROTEIN INCREASED [None]
  - DIABETIC KETOACIDOSIS [None]
  - HEART RATE INCREASED [None]
  - INFLUENZA LIKE ILLNESS [None]
  - INJECTION SITE ERYTHEMA [None]
  - INJECTION SITE MASS [None]
  - NAUSEA [None]
  - OPTIC NEURITIS [None]
  - THYROID DISORDER [None]
  - TREATMENT NONCOMPLIANCE [None]
  - TYPE 2 DIABETES MELLITUS [None]
  - WEIGHT DECREASED [None]
